FAERS Safety Report 17113993 (Version 1)
Quarter: 2019Q4

REPORT INFORMATION
  Report Type: Spontaneous
  Country: SE (occurrence: SE)
  Receive Date: 20191205
  Receipt Date: 20191205
  Transmission Date: 20200122
  Serious: Yes (Hospitalization)
  Sender: FDA-Public Use
  Company Number: SE-TEVA-2019-SE-1146847

PATIENT
  Age: 22 Year
  Sex: Female

DRUGS (2)
  1. LERGIGAN (PROMETHAZINE HYDROCHLORIDE) [Suspect]
     Active Substance: PROMETHAZINE HYDROCHLORIDE
     Dosage: 5-10X25 MG
     Route: 048
     Dates: start: 20180423, end: 20180423
  2. OXASCAND [Suspect]
     Active Substance: OXAZEPAM
     Dosage: ^5 OXASCAND^
     Route: 048
     Dates: start: 20180423, end: 20180423

REACTIONS (2)
  - Intentional self-injury [Unknown]
  - Intentional overdose [Unknown]

NARRATIVE: CASE EVENT DATE: 20180423
